FAERS Safety Report 6039430-3 (Version None)
Quarter: 2009Q1

REPORT INFORMATION
  Report Type: 
  Country: None (occurrence: None)
  Receive Date: 20090115
  Receipt Date: 20090109
  Transmission Date: 20090719
  Serious: Yes (Hospitalization, Other)
  Sender: FDA-Public Use
  Company Number: US-AMGEN-QUU327705

PATIENT
  Sex: Female

DRUGS (1)
  1. ENBREL [Suspect]
     Indication: RHEUMATOID ARTHRITIS
     Route: 058
     Dates: start: 19980601

REACTIONS (7)
  - ABDOMINAL ADHESIONS [None]
  - BENIGN PANCREATIC NEOPLASM [None]
  - BOWEL MOVEMENT IRREGULARITY [None]
  - HYPOTHYROIDISM [None]
  - POST PROCEDURAL COMPLICATION [None]
  - PROCEDURAL PAIN [None]
  - SPLENECTOMY [None]
